FAERS Safety Report 14239545 (Version 1)
Quarter: 2017Q4

REPORT INFORMATION
  Report Type: Spontaneous
  Country: US (occurrence: US)
  Receive Date: 20171128
  Receipt Date: 20171128
  Transmission Date: 20180321
  Serious: No
  Sender: FDA-Public Use
  Company Number: None

PATIENT
  Age: 42 Year
  Sex: Female
  Weight: 122.4 kg

DRUGS (1)
  1. ZYPREXA [Suspect]
     Active Substance: OLANZAPINE
     Dosage: ?          QUANTITY:30 TABLET(S);?
     Dates: start: 20131104, end: 20171128

REACTIONS (1)
  - Sinusitis [None]

NARRATIVE: CASE EVENT DATE: 20171106
